FAERS Safety Report 13134370 (Version 2)
Quarter: 2017Q1

REPORT INFORMATION
  Report Type: Spontaneous
  Country: US (occurrence: US)
  Receive Date: 20170120
  Receipt Date: 20170308
  Transmission Date: 20170428
  Serious: No
  Sender: FDA-Public Use
  Company Number: US-PFIZER INC-2017026952

PATIENT
  Age: 76 Year
  Sex: Male
  Weight: 86.18 kg

DRUGS (2)
  1. METHYLPREDNISOLONE. [Suspect]
     Active Substance: METHYLPREDNISOLONE
     Indication: SINUS CONGESTION
     Dosage: 4MG DOSE PACK
     Route: 048
     Dates: start: 20170117
  2. METHYLPREDNISOLONE. [Suspect]
     Active Substance: METHYLPREDNISOLONE
     Indication: EAR CONGESTION
     Dosage: UNK

REACTIONS (6)
  - Underdose [Unknown]
  - Product label issue [Unknown]
  - Product use issue [Unknown]
  - Dysgeusia [Unknown]
  - Product taste abnormal [Unknown]
  - Product physical issue [Unknown]

NARRATIVE: CASE EVENT DATE: 201701
